FAERS Safety Report 18440829 (Version 1)
Quarter: 2020Q4

REPORT INFORMATION
  Report Type: Spontaneous
  Country: US (occurrence: US)
  Receive Date: 20201029
  Receipt Date: 20201029
  Transmission Date: 20210114
  Serious: Yes (Hospitalization)
  Sender: FDA-Public Use
  Company Number: US-CADILA HEALTHCARE LIMITED-US-ZYDUS-056037

PATIENT
  Age: 29 Year
  Sex: Female

DRUGS (2)
  1. DESMOPRESSIN NASAL SPRAY [Suspect]
     Active Substance: DESMOPRESSIN
     Dosage: 30 MICROGRAM
     Route: 045
     Dates: start: 202006, end: 202006
  2. DESMOPRESSIN NASAL SPRAY [Suspect]
     Active Substance: DESMOPRESSIN
     Dosage: 30 MICROGRAM, BID
     Route: 045
     Dates: start: 2020, end: 2020

REACTIONS (1)
  - Hyponatraemia [Recovered/Resolved]

NARRATIVE: CASE EVENT DATE: 20200609
